FAERS Safety Report 19969133 (Version 2)
Quarter: 2022Q4

REPORT INFORMATION
  Report Type: Spontaneous
  Country: US (occurrence: US)
  Receive Date: 20211019
  Receipt Date: 20221102
  Transmission Date: 20230113
  Serious: No
  Sender: FDA-Public Use
  Company Number: US-UROGEN PHARMA LTD.-2021-UGN-000083

PATIENT
  Age: 87 Year
  Sex: Male

DRUGS (18)
  1. JELMYTO [Suspect]
     Active Substance: MITOMYCIN
     Indication: Transitional cell cancer of the renal pelvis and ureter
     Dosage: 1 MG (INSTILLATION)
     Dates: start: 20210225, end: 20210225
  2. JELMYTO [Suspect]
     Active Substance: MITOMYCIN
     Dosage: 1 MG (INSTILLATION)
     Dates: start: 20210322, end: 20210322
  3. JELMYTO [Suspect]
     Active Substance: MITOMYCIN
     Dosage: 1 MG (INSTILLATION)
     Dates: start: 20210329, end: 20210329
  4. JELMYTO [Suspect]
     Active Substance: MITOMYCIN
     Dosage: 1 MG (INSTILLATION)
     Dates: start: 20210405, end: 20210405
  5. JELMYTO [Suspect]
     Active Substance: MITOMYCIN
     Dosage: 1 MG (INSTILLATION)
     Dates: start: 20210412, end: 20210412
  6. JELMYTO [Suspect]
     Active Substance: MITOMYCIN
     Dosage: 1 MG (INSTILLATION)
     Dates: start: 20210419, end: 20210419
  7. JELMYTO [Suspect]
     Active Substance: MITOMYCIN
     Dosage: 1 MG (INSTILLATION)
     Dates: start: 20210913, end: 20210913
  8. JELMYTO [Suspect]
     Active Substance: MITOMYCIN
     Dosage: 1 MG (INSTILLATION)
     Dates: start: 20210920, end: 20210920
  9. JELMYTO [Suspect]
     Active Substance: MITOMYCIN
     Dosage: 1 MG (INSTILLATION)
     Dates: start: 20210927, end: 20210927
  10. JELMYTO [Suspect]
     Active Substance: MITOMYCIN
     Dosage: 1 MG (INSTILLATION)
     Dates: start: 20211004, end: 20211004
  11. JELMYTO [Suspect]
     Active Substance: MITOMYCIN
     Dosage: 1 MG (INSTILLATION)
     Dates: start: 20211013, end: 20211013
  12. JELMYTO [Suspect]
     Active Substance: MITOMYCIN
     Dosage: 1 MG (INSTILLATION)
     Dates: start: 20211018, end: 20211018
  13. JELMYTO [Suspect]
     Active Substance: MITOMYCIN
     Dosage: 1 MG (INSTILLATION)
     Dates: start: 20220509, end: 20220509
  14. JELMYTO [Suspect]
     Active Substance: MITOMYCIN
     Dosage: 1 MG (INSTILLATION)
     Dates: start: 20220606, end: 20220606
  15. JELMYTO [Suspect]
     Active Substance: MITOMYCIN
     Dosage: 1 MG (INSTILLATION)
     Dates: start: 20220711, end: 20220711
  16. JELMYTO [Suspect]
     Active Substance: MITOMYCIN
     Dosage: 1 MG (INSTILLATION)
     Dates: start: 20220725, end: 20220725
  17. JELMYTO [Suspect]
     Active Substance: MITOMYCIN
     Dosage: 1 MG (INSTILLATION)
     Dates: start: 20220829, end: 20220829
  18. JELMYTO [Suspect]
     Active Substance: MITOMYCIN
     Dosage: 1 MG (INSTILLATION)
     Dates: start: 20220912, end: 20220912

REACTIONS (3)
  - Hypotension [Unknown]
  - Dizziness [Unknown]
  - Muscular weakness [Unknown]

NARRATIVE: CASE EVENT DATE: 20210101
